FAERS Safety Report 12398826 (Version 2)
Quarter: 2016Q2

REPORT INFORMATION
  Report Type: Spontaneous
  Country: US (occurrence: US)
  Receive Date: 20160524
  Receipt Date: 20160606
  Transmission Date: 20160815
  Serious: Yes (Other)
  Sender: FDA-Public Use
  Company Number: US-PFIZER INC-2016269887

PATIENT
  Age: 65 Year
  Sex: Female

DRUGS (3)
  1. PROBENECID. [Interacting]
     Active Substance: PROBENECID
     Indication: NEUROSYPHILIS
     Dosage: 500 MG, 4X/DAY (RECEIVED TWO DOSES)
  2. BENZYLPENICILLIN POTASSIUM [Interacting]
     Active Substance: PENICILLIN G POTASSIUM
     Dosage: 4 MILLION IU, EVERY 4 HRS
     Route: 042
  3. BENZYLPENICILLIN POTASSIUM [Suspect]
     Active Substance: PENICILLIN G POTASSIUM
     Indication: NEUROSYPHILIS
     Dosage: 2.4 MILLION IU, UNK
     Route: 030

REACTIONS (3)
  - Toxicity to various agents [Unknown]
  - Toxic encephalopathy [Recovered/Resolved]
  - Drug interaction [Recovered/Resolved]
